FAERS Safety Report 10361140 (Version 1)
Quarter: 2014Q3

REPORT INFORMATION
  Report Type: Spontaneous
  Country: JP (occurrence: JP)
  Receive Date: 20140804
  Receipt Date: 20140804
  Transmission Date: 20150326
  Serious: Yes (Other)
  Sender: FDA-Public Use
  Company Number: JP-MYLAN-2014M1000247

PATIENT

DRUGS (16)
  1. REMIFENTANIL [Concomitant]
     Active Substance: REMIFENTANIL
     Indication: INDUCTION OF ANAESTHESIA
     Dosage: 0.5MCG/KG/MIN
     Route: 065
  2. ROCURONIUM BROMIDE. [Concomitant]
     Active Substance: ROCURONIUM BROMIDE
     Indication: MUSCLE RELAXANT THERAPY
     Dosage: PRIOR TO TRACHEAL INTUBATION; AS APPROPRIATE DURING SURGERY
     Route: 065
  3. CARBOCISTEINE [Concomitant]
     Active Substance: CARBOCYSTEINE
     Indication: CHRONIC SINUSITIS
     Dosage: 750MG/DAY
     Route: 065
  4. MORPHINE [Suspect]
     Active Substance: MORPHINE
     Dosage: IV PATIENT-CONTROLLED ANALGESIA; BOLUS 0.84MG; LOCKOUT INTERVAL 5 MINUTES
     Route: 040
  5. FENTANYL. [Concomitant]
     Active Substance: FENTANYL
     Indication: MAINTENANCE OF ANAESTHESIA
     Dosage: ADMINISTERED INTERMITTENTLY
     Route: 065
  6. DICLOFENAC [Concomitant]
     Active Substance: DICLOFENAC
     Indication: PROCEDURAL PAIN
     Dosage: 50MG DURING SURGERY
     Route: 065
  7. DICLOFENAC [Concomitant]
     Active Substance: DICLOFENAC
     Route: 065
  8. LOXOPROFEN [Concomitant]
     Active Substance: LOXOPROFEN
     Route: 065
  9. PROPOFOL. [Concomitant]
     Active Substance: PROPOFOL
     Indication: INDUCTION OF ANAESTHESIA
     Dosage: 70MG
     Route: 065
  10. SEVOFLURANE. [Concomitant]
     Active Substance: SEVOFLURANE
     Indication: MAINTENANCE OF ANAESTHESIA
     Dosage: 2-2.5%
     Route: 065
  11. FLURBIPROFEN. [Concomitant]
     Active Substance: FLURBIPROFEN
     Route: 065
  12. MEQUITAZINE [Concomitant]
     Active Substance: MEQUITAZINE
     Indication: CHRONIC SINUSITIS
     Dosage: 6MG/DAY
     Route: 065
  13. FLURBIPROFEN. [Concomitant]
     Active Substance: FLURBIPROFEN
     Indication: PROCEDURAL PAIN
     Dosage: 50MG DURING SURGERY
     Route: 065
  14. REMIFENTANIL [Concomitant]
     Active Substance: REMIFENTANIL
     Indication: MAINTENANCE OF ANAESTHESIA
     Dosage: 0.2-0.5MCG/KG/MIN
     Route: 065
  15. METOCLOPRAMIDE. [Concomitant]
     Active Substance: METOCLOPRAMIDE
     Indication: NAUSEA
     Dosage: 10MG, WHEN APPROPRIATE
     Route: 065
  16. MONTELUKAST [Concomitant]
     Active Substance: MONTELUKAST SODIUM
     Indication: CHRONIC SINUSITIS
     Dosage: 5MG/DAY
     Route: 065

REACTIONS (2)
  - Oxygen saturation decreased [None]
  - Asthma [Recovered/Resolved]
